FAERS Safety Report 7412812-0 (Version None)
Quarter: 2011Q2

REPORT INFORMATION
  Report Type: 
  Country: None (occurrence: None)
  Receive Date: 20110413
  Receipt Date: 20110307
  Transmission Date: 20111010
  Serious: Yes (Other)
  Sender: FDA-Public Use
  Company Number: B0704770A

PATIENT
  Sex: Female
  Weight: 82 kg

DRUGS (1)
  1. MALARONE [Suspect]
     Indication: MALARIA PROPHYLAXIS
     Dosage: 1TAB PER DAY
     Route: 048
     Dates: start: 20110106, end: 20110115

REACTIONS (7)
  - NAUSEA [None]
  - CHILLBLAINS [None]
  - FALL [None]
  - NYSTAGMUS [None]
  - VERTIGO POSITIONAL [None]
  - VESTIBULAR DISORDER [None]
  - VASCULITIS [None]
